FAERS Safety Report 25669732 (Version 1)
Quarter: 2025Q3

REPORT INFORMATION
  Report Type: Spontaneous
  Country: US (occurrence: US)
  Receive Date: 20250812
  Receipt Date: 20250812
  Transmission Date: 20251020
  Serious: No
  Sender: ELI LILLY AND COMPANY
  Company Number: US-ELI_LILLY_AND_COMPANY-US202508002868

PATIENT
  Age: 42 Year
  Sex: Female

DRUGS (4)
  1. TALTZ [Suspect]
     Active Substance: IXEKIZUMAB
     Indication: Product used for unknown indication
     Route: 065
  2. TALTZ [Suspect]
     Active Substance: IXEKIZUMAB
     Indication: Product used for unknown indication
     Route: 065
  3. TALTZ [Suspect]
     Active Substance: IXEKIZUMAB
     Route: 065
  4. TALTZ [Suspect]
     Active Substance: IXEKIZUMAB
     Route: 065

REACTIONS (1)
  - Injection site pain [Unknown]
